FAERS Safety Report 8840449 (Version 1)
Quarter: 2012Q4

REPORT INFORMATION
  Report Type: 
  Country: US (occurrence: US)
  Receive Date: 20121015
  Receipt Date: 20121015
  Transmission Date: 20130627
  Serious: Yes (Other)
  Sender: FDA-Public Use
  Company Number: US-ROCHE-1139626

PATIENT
  Sex: Female

DRUGS (3)
  1. PROTROPIN [Suspect]
     Indication: HYPOPITUITARISM
     Dosage: dilute wth 2 ml, dose per injection 0.17 ml, 3cc
     Route: 058
  2. CORTEF [Concomitant]
     Dosage: 4 mg per day in three divided doses
     Route: 065
  3. LEVOTHYROXINE [Concomitant]
     Route: 065

REACTIONS (3)
  - Blood glucose decreased [Unknown]
  - Vomiting [Unknown]
  - Lethargy [Unknown]
